FAERS Safety Report 25260153 (Version 1)
Quarter: 2025Q2

REPORT INFORMATION
  Report Type: Spontaneous
  Country: PL (occurrence: PL)
  Receive Date: 20250501
  Receipt Date: 20250501
  Transmission Date: 20250716
  Serious: Yes (Other)
  Sender: NOVARTIS
  Company Number: PL-002147023-NVSC2025PL067426

PATIENT
  Age: 60 Year
  Sex: Female

DRUGS (1)
  1. NILOTINIB [Suspect]
     Active Substance: NILOTINIB
     Indication: Chronic myeloid leukaemia
     Dosage: 800 MG, QD
     Route: 065
     Dates: start: 20231227

REACTIONS (6)
  - Hepatic cirrhosis [Unknown]
  - Toxicity to various agents [Unknown]
  - Blood bilirubin increased [Unknown]
  - Abdominal pain upper [Unknown]
  - Scleral discolouration [Unknown]
  - Yellow skin [Unknown]

NARRATIVE: CASE EVENT DATE: 20240124
